FAERS Safety Report 21946842 (Version 1)
Quarter: 2023Q1

REPORT INFORMATION
  Report Type: Spontaneous
  Country: EE (occurrence: EE)
  Receive Date: 20230202
  Receipt Date: 20230202
  Transmission Date: 20230418
  Serious: Yes (Other)
  Sender: FDA-Public Use
  Company Number: EE-PFIZER INC-PV202300018394

PATIENT
  Age: 10 Year
  Sex: Female

DRUGS (1)
  1. SOLU-MEDROL [Suspect]
     Active Substance: METHYLPREDNISOLONE SODIUM SUCCINATE
     Indication: Epilepsy
     Dosage: PREDNISOLONE EQUIVALENT DOSE OF 35.5 MG/KG/DIE ON ALL FOUR STUDY DAYS
     Route: 042

REACTIONS (1)
  - Hyperglycaemia [Unknown]
